FAERS Safety Report 24669723 (Version 1)
Quarter: 2024Q4

REPORT INFORMATION
  Report Type: Report from Study
  Country: KR (occurrence: KR)
  Receive Date: 20241127
  Receipt Date: 20241127
  Transmission Date: 20250114
  Serious: Yes (Death, Hospitalization, Other)
  Sender: ROCHE
  Company Number: KR-ROCHE-10000140079

PATIENT

DRUGS (7)
  1. RITUXIMAB [Suspect]
     Active Substance: RITUXIMAB
     Indication: Neuromyelitis optica spectrum disorder
     Route: 042
  2. MYCOPHENOLATE MOFETIL [Suspect]
     Active Substance: MYCOPHENOLATE MOFETIL
     Indication: Neuromyelitis optica spectrum disorder
     Dosage: {/-1000 MG
     Route: 065
  3. MYCOPHENOLATE MOFETIL [Suspect]
     Active Substance: MYCOPHENOLATE MOFETIL
     Dosage: IQR (1000-2000 MG)
     Route: 065
  4. TOCILIZUMAB [Suspect]
     Active Substance: TOCILIZUMAB
     Indication: Neuromyelitis optica spectrum disorder
     Route: 065
  5. AZATHIOPRINE [Suspect]
     Active Substance: AZATHIOPRINE
     Indication: Neuromyelitis optica spectrum disorder
     Dosage: {2 MG/KG
     Route: 065
  6. AZATHIOPRINE [Suspect]
     Active Substance: AZATHIOPRINE
     Dosage: (IQR 50-100 MG)
     Route: 065
  7. MITOXANTRONE [Suspect]
     Active Substance: MITOXANTRONE HYDROCHLORIDE
     Indication: Neuromyelitis optica spectrum disorder
     Route: 065

REACTIONS (16)
  - Pneumonia [Fatal]
  - Sepsis [Fatal]
  - COVID-19 [Unknown]
  - Pyelonephritis acute [Unknown]
  - Leukopenia [Unknown]
  - Liver function test abnormal [Unknown]
  - Nausea [Unknown]
  - Alopecia [Unknown]
  - Infusion related reaction [Unknown]
  - Septic shock [Unknown]
  - Infection [Unknown]
  - Tongue neoplasm malignant stage unspecified [Unknown]
  - Gastric adenoma [Unknown]
  - Mucoepidermoid carcinoma of salivary gland [Unknown]
  - Pneumonia aspiration [Fatal]
  - Hypogammaglobulinaemia [Unknown]
